FAERS Safety Report 18917750 (Version 1)
Quarter: 2021Q1

REPORT INFORMATION
  Report Type: Spontaneous
  Country: DE (occurrence: DE)
  Receive Date: 20210219
  Receipt Date: 20210219
  Transmission Date: 20210420
  Serious: Yes (Hospitalization)
  Sender: FDA-Public Use
  Company Number: DE-ELI_LILLY_AND_COMPANY-DE202102004674

PATIENT
  Sex: Female

DRUGS (2)
  1. LIPROLOG LISPRO [Suspect]
     Active Substance: INSULIN LISPRO
     Indication: DIABETES MELLITUS
     Dosage: UNK UNK, UNKNOWN
     Route: 058
  2. LANTUS [Concomitant]
     Active Substance: INSULIN GLARGINE
     Dosage: UNK, EACH EVENING
     Route: 065

REACTIONS (5)
  - Fall [Unknown]
  - Blood glucose increased [Unknown]
  - Underdose [Unknown]
  - Loss of control of legs [Unknown]
  - Mental disorder [Unknown]

NARRATIVE: CASE EVENT DATE: 202101
